FAERS Safety Report 4510737-1 (Version None)
Quarter: 2004Q4

REPORT INFORMATION
  Report Type: 
  Country: None (occurrence: None)
  Receive Date: 20041122
  Receipt Date: 20041110
  Transmission Date: 20050328
  Serious: Yes (Life-Threatening, Hospitalization, Other)
  Sender: FDA-Public Use
  Company Number: 2003019122

PATIENT
  Age: 38 Year
  Sex: Male

DRUGS (12)
  1. VFEND [Suspect]
     Indication: OESOPHAGEAL CANDIDIASIS
     Dosage: 800 MG (BID), ORAL
     Route: 048
     Dates: start: 20030311, end: 20030331
  2. MEROPENEM (MEROPENEM) [Suspect]
     Indication: ILL-DEFINED DISORDER
     Dates: start: 20030331
  3. FILGRASTIM (FILGRASTIM) [Concomitant]
  4. TENOFOVIR (TENOFOVIR) [Concomitant]
  5. ZIDOVUDINE [Concomitant]
  6. AZITHROMYCIN [Concomitant]
  7. ZOPICLONE (ZOPICLONE) [Concomitant]
  8. CELECOXIB (CELECOXIB) [Concomitant]
  9. GABAPENTIN [Concomitant]
  10. MEGESTROL ACETATE [Concomitant]
  11. AMITRIPTYLINE HCL [Concomitant]
  12. ALL OTHER THERAPEUTIC PRODUCTS (ALL OTHER THERAPEUTIC PRODUCTS) [Concomitant]

REACTIONS (4)
  - HAEMOGLOBIN DECREASED [None]
  - LEUKOPENIA [None]
  - NEUTROPENIA [None]
  - PLATELET COUNT INCREASED [None]
